FAERS Safety Report 5587158-6 (Version None)
Quarter: 2008Q1

REPORT INFORMATION
  Report Type: 
  Country: None (occurrence: None)
  Receive Date: 20080110
  Receipt Date: 20080102
  Transmission Date: 20080703
  Serious: Yes (Hospitalization)
  Sender: FDA-Public Use
  Company Number: GB-PFIZER INC-2007100585

PATIENT
  Sex: Female
  Weight: 70 kg

DRUGS (1)
  1. SUTENT [Suspect]
     Indication: METASTATIC NEOPLASM
     Route: 048
     Dates: start: 20071113, end: 20071126

REACTIONS (9)
  - BLOOD CALCIUM ABNORMAL [None]
  - CEREBRAL ISCHAEMIA [None]
  - DISSOCIATION [None]
  - GRAND MAL CONVULSION [None]
  - HAEMOGLOBIN DECREASED [None]
  - HALLUCINATION, VISUAL [None]
  - HEADACHE [None]
  - PLATELET COUNT DECREASED [None]
  - WHITE BLOOD CELL COUNT DECREASED [None]
